FAERS Safety Report 12806209 (Version 9)
Quarter: 2019Q2

REPORT INFORMATION
  Report Type: Report from Study
  Country: CO (occurrence: CO)
  Receive Date: 20161004
  Receipt Date: 20190627
  Transmission Date: 20190711
  Serious: Yes (Other)
  Sender: FDA-Public Use
  Company Number: PHHY2016CO134265

PATIENT
  Age: 58 Year
  Sex: Male
  Weight: 68 kg

DRUGS (8)
  1. THIAMINE. [Concomitant]
     Active Substance: THIAMINE
     Indication: PRODUCT USED FOR UNKNOWN INDICATION
     Dosage: 1 DF, QD
     Route: 048
  2. TASIGNA [Suspect]
     Active Substance: NILOTINIB
     Dosage: 300 MG, Q12H
     Route: 048
     Dates: start: 201504
  3. TASIGNA [Suspect]
     Active Substance: NILOTINIB
     Dosage: 2 DF, Q12H
     Route: 048
     Dates: start: 20170428
  4. TASIGNA [Suspect]
     Active Substance: NILOTINIB
     Dosage: 6 DF, QD (6 CAPSULES OF 200MG DAILY)
     Route: 048
  5. TASIGNA [Suspect]
     Active Substance: NILOTINIB
     Dosage: 800 MG, QD
     Route: 048
     Dates: start: 2015
  6. NAPROXEN. [Concomitant]
     Active Substance: NAPROXEN
     Indication: PRODUCT USED FOR UNKNOWN INDICATION
     Dosage: 2 DF, Q12H
     Route: 048
  7. TASIGNA [Suspect]
     Active Substance: NILOTINIB
     Indication: CHRONIC MYELOID LEUKAEMIA
     Dosage: 2 DF, Q12H
     Route: 048
     Dates: start: 20140927
  8. FOLIC ACID. [Concomitant]
     Active Substance: FOLIC ACID
     Indication: PRODUCT USED FOR UNKNOWN INDICATION
     Dosage: 1 DF, QD
     Route: 065

REACTIONS (24)
  - Osteoarthritis [Unknown]
  - Arthralgia [Unknown]
  - Pelvic fracture [Unknown]
  - Polymerase chain reaction positive [Recovering/Resolving]
  - Hypoaesthesia [Unknown]
  - Musculoskeletal discomfort [Unknown]
  - Clavicle fracture [Unknown]
  - Pain in extremity [Unknown]
  - Depressed mood [Unknown]
  - Haemoglobin decreased [Unknown]
  - Gastritis [Unknown]
  - Headache [Unknown]
  - Nausea [Unknown]
  - Gait disturbance [Unknown]
  - Acne [Unknown]
  - Inappropriate schedule of product administration [Unknown]
  - Weight decreased [Unknown]
  - Insomnia [Unknown]
  - Decreased appetite [Unknown]
  - Malaise [Unknown]
  - Muscle spasms [Unknown]
  - Asthenia [Unknown]
  - Dizziness [Unknown]
  - Tooth loss [Unknown]

NARRATIVE: CASE EVENT DATE: 201611
